APPROVED DRUG PRODUCT: MEGACE
Active Ingredient: MEGESTROL ACETATE
Strength: 40MG/ML **Federal Register determination that product was not discontinued or withdrawn for safety or effectiveness reasons**
Dosage Form/Route: SUSPENSION;ORAL
Application: N020264 | Product #001
Applicant: BRISTOL MYERS SQUIBB
Approved: Sep 10, 1993 | RLD: Yes | RS: No | Type: DISCN